FAERS Safety Report 5241150-X (Version None)
Quarter: 2007Q1

REPORT INFORMATION
  Report Type: 
  Country: None (occurrence: None)
  Receive Date: 20070220
  Receipt Date: 20070207
  Transmission Date: 20070707
  Serious: Yes (Other)
  Sender: FDA-Public Use
  Company Number: US-JNJFOC-20070202397

PATIENT
  Sex: Female
  Weight: 93.9 kg

DRUGS (7)
  1. REMICADE [Suspect]
     Dosage: 4 INFUSIONS ON UNKNOWN DATES.
     Route: 042
  2. REMICADE [Suspect]
     Indication: RHEUMATOID ARTHRITIS
     Route: 042
  3. TYLENOL [Concomitant]
     Indication: PREMEDICATION
  4. METHOTREXATE [Concomitant]
     Indication: RHEUMATOID ARTHRITIS
  5. LYRICA [Concomitant]
  6. TYLENOL [Concomitant]
     Indication: RHEUMATOID ARTHRITIS
  7. CLARITIN [Concomitant]
     Indication: PREMEDICATION

REACTIONS (3)
  - EXCORIATION [None]
  - NERVE INJURY [None]
  - SKIN EXFOLIATION [None]
